FAERS Safety Report 10053255 (Version 3)
Quarter: 2014Q2

REPORT INFORMATION
  Report Type: Spontaneous
  Country: LT (occurrence: LT)
  Receive Date: 20140402
  Receipt Date: 20140603
  Transmission Date: 20141212
  Serious: Yes (Death, Hospitalization, Other)
  Sender: FDA-Public Use
  Company Number: LT-BRISTOL-MYERS SQUIBB COMPANY-20582409

PATIENT
  Age: 60 Year
  Sex: Female

DRUGS (8)
  1. BYETTA [Suspect]
     Indication: TYPE 2 DIABETES MELLITUS
     Route: 058
     Dates: start: 20120206, end: 20140115
  2. GLIPIZIDE [Concomitant]
     Indication: TYPE 2 DIABETES MELLITUS
     Dosage: XL
     Route: 048
     Dates: start: 20100531
  3. METFORMIN [Concomitant]
     Dosage: 2000MG/D
     Route: 048
     Dates: start: 20100303
  4. DULOXETINE HCL [Concomitant]
     Dates: start: 20120823
  5. ALLOPURINOL [Concomitant]
     Dates: start: 20100407, end: 20140101
  6. RAMIPRIL [Concomitant]
  7. RAMIPRIL + HCTZ [Concomitant]
     Dosage: 1DF: 5/25 MG
     Dates: start: 20101202
  8. TORASEMIDE [Concomitant]
     Dates: start: 20101202

REACTIONS (1)
  - Pancreatic carcinoma metastatic [Fatal]
